FAERS Safety Report 19274309 (Version 1)
Quarter: 2021Q2

REPORT INFORMATION
  Report Type: Other
  Country: SI (occurrence: SI)
  Receive Date: 20210519
  Receipt Date: 20210519
  Transmission Date: 20210717
  Serious: Yes (Other)
  Sender: FDA-Public Use
  Company Number: SI-ROCHE-2828857

PATIENT

DRUGS (3)
  1. VISMODEGIB. [Suspect]
     Active Substance: VISMODEGIB
     Indication: BASAL CELL CARCINOMA
     Route: 065
  2. VISMODEGIB. [Suspect]
     Active Substance: VISMODEGIB
     Indication: BASAL CELL CARCINOMA
  3. VISMODEGIB. [Suspect]
     Active Substance: VISMODEGIB
     Indication: BASAL CELL NAEVUS SYNDROME

REACTIONS (6)
  - Respiratory tract infection [Unknown]
  - Anaemia [Unknown]
  - Vomiting [Unknown]
  - Muscle spasms [Unknown]
  - Weight decreased [Unknown]
  - Diarrhoea [Unknown]
